FAERS Safety Report 7056394-4 (Version None)
Quarter: 2010Q4

REPORT INFORMATION
  Report Type: 
  Country: None (occurrence: None)
  Receive Date: 20101021
  Receipt Date: 20101011
  Transmission Date: 20110411
  Serious: Yes (Other)
  Sender: FDA-Public Use
  Company Number: PHHY2010BR68375

PATIENT
  Sex: Female

DRUGS (9)
  1. ACLASTA [Suspect]
     Indication: OSTEOPOROSIS
     Dosage: 5MG/100ML
     Route: 042
     Dates: start: 20091210
  2. ATENOLOL [Concomitant]
     Indication: HYPERTENSION
     Dosage: 100MG TWICE DAILY, FOR MANY YEARS
     Route: 048
  3. CAPTOPRIL [Concomitant]
     Indication: HYPERTENSION
     Dosage: 50MG, TWICE DAILY, FOR MANY YEAR
     Route: 048
  4. ANLO [Concomitant]
     Indication: HYPERTENSION
     Dosage: 10MG ONCE DAILY, FOR MANY YEARS
     Route: 048
  5. HCT [Concomitant]
     Indication: HYPERTENSION
     Dosage: 25MG, ONCE DAILY,FOR MANY YEARS
     Route: 048
  6. METFORMIN HCL [Concomitant]
     Indication: DIABETES MELLITUS
     Dosage: 850MG ONCE DAILY,FOR MANY YEARS
     Route: 048
  7. CALDEA [Concomitant]
     Indication: OSTEOPOROSIS
     Dosage: ONCE DAILY, ORAL FOR MANY YEARS
  8. SINVASTATINA [Concomitant]
     Indication: BLOOD CHOLESTEROL INCREASED
     Dosage: 40MG ONCE DAILY,FOR MANY YEARS
     Route: 048
  9. RIVOTRIL [Concomitant]
     Indication: RESTLESS LEGS SYNDROME
     Dosage: 0,5MG ONCE DAILY,FOR MANY YEARS
     Route: 048

REACTIONS (1)
  - ANKLE FRACTURE [None]
